FAERS Safety Report 21873482 (Version 1)
Quarter: 2023Q1

REPORT INFORMATION
  Report Type: Spontaneous
  Country: US (occurrence: US)
  Receive Date: 20230117
  Receipt Date: 20230117
  Transmission Date: 20230418
  Serious: No
  Sender: FDA-Public Use
  Company Number: US-BAYER-2023P000281

PATIENT
  Sex: Male
  Weight: 72.575 kg

DRUGS (9)
  1. STIVARGA [Suspect]
     Active Substance: REGORAFENIB
     Indication: Product used for unknown indication
     Dosage: UNK
  2. LONSURF [Suspect]
     Active Substance: TIPIRACIL HYDROCHLORIDE\TRIFLURIDINE
     Indication: Colorectal cancer
     Dosage: 120  MG  ON DAYS 1-5 AND 8-12 OF A 28 DAY CYCLE
     Route: 048
     Dates: start: 20220928
  3. VITAMIN B12 [Concomitant]
     Active Substance: CYANOCOBALAMIN
     Dosage: UNK
  4. ASCORBIC ACID [Concomitant]
     Active Substance: ASCORBIC ACID
  5. .ALPHA.-TOCOPHEROL [Concomitant]
     Active Substance: .ALPHA.-TOCOPHEROL
  6. ZINC [Concomitant]
     Active Substance: ZINC
  7. ZINC CITRATE [Concomitant]
     Active Substance: ZINC CITRATE
  8. ZINC GLUCONATE [Concomitant]
     Active Substance: ZINC GLUCONATE
  9. ZINC LOZENGES [ASCORBIC ACID;ECHINACEA PURPUREA;ZINC CITRATE;ZINC [Concomitant]
     Dosage: UNK

REACTIONS (2)
  - Illness [Unknown]
  - Vomiting [Unknown]
